APPROVED DRUG PRODUCT: CEVIMELINE HYDROCHLORIDE
Active Ingredient: CEVIMELINE HYDROCHLORIDE
Strength: 30MG
Dosage Form/Route: CAPSULE;ORAL
Application: A091591 | Product #001 | TE Code: AB
Applicant: HIKMA PHARMACEUTICALS USA INC
Approved: Jul 8, 2013 | RLD: No | RS: No | Type: RX